FAERS Safety Report 7660100-X (Version None)
Quarter: 2011Q3

REPORT INFORMATION
  Report Type: 
  Country: None (occurrence: None)
  Receive Date: 20110805
  Receipt Date: 20110722
  Transmission Date: 20111222
  Serious: Yes (Hospitalization)
  Sender: FDA-Public Use
  Company Number: PHHY2011CZ66541

PATIENT
  Sex: Male

DRUGS (10)
  1. HELICID [Concomitant]
     Dosage: UNK
  2. LUSOPRESS [Concomitant]
  3. MILURIT [Concomitant]
  4. FURON [Concomitant]
  5. CITALOPRAM HYDROBROMIDE [Concomitant]
     Dosage: UNK
  6. TANAKAN [Concomitant]
  7. INSULATARD NPH HUMAN [Concomitant]
  8. TALLITON [Concomitant]
     Dosage: UNK
  9. EPREX [Concomitant]
  10. TASIGNA [Suspect]
     Indication: CHRONIC MYELOID LEUKAEMIA
     Dosage: 200 MG, DAILY
     Route: 048
     Dates: start: 20080919

REACTIONS (1)
  - DEEP VEIN THROMBOSIS [None]
